FAERS Safety Report 4980072-6 (Version None)
Quarter: 2006Q2

REPORT INFORMATION
  Report Type: 
  Country: None (occurrence: None)
  Receive Date: 20060421
  Receipt Date: 20050906
  Transmission Date: 20061013
  Serious: Yes (Hospitalization)
  Sender: FDA-Public Use
  Company Number: US-MERCK-0509USA00746

PATIENT
  Age: 47 Year
  Sex: Male
  Weight: 108 kg

DRUGS (7)
  1. VIOXX [Suspect]
     Indication: PAIN IN EXTREMITY
     Route: 048
     Dates: start: 20000126, end: 20030801
  2. VIOXX [Suspect]
     Route: 048
     Dates: start: 20000126, end: 20030801
  3. VIOXX [Suspect]
     Route: 048
     Dates: start: 20000121
  4. VIOXX [Suspect]
     Indication: RADICULOPATHY
     Route: 048
     Dates: start: 20000126, end: 20030801
  5. VIOXX [Suspect]
     Route: 048
     Dates: start: 20000126, end: 20030801
  6. VIOXX [Suspect]
     Route: 048
     Dates: start: 20000121
  7. FLOXIN [Concomitant]
     Route: 065
     Dates: start: 20000121

REACTIONS (12)
  - ACUTE MYOCARDIAL INFARCTION [None]
  - CARDIAC FAILURE CONGESTIVE [None]
  - CHEST PAIN [None]
  - CORONARY ARTERY DISEASE [None]
  - CORONARY ARTERY OCCLUSION [None]
  - DYSPEPSIA [None]
  - DYSPNOEA [None]
  - FLATULENCE [None]
  - GASTRITIS [None]
  - HEART RATE INCREASED [None]
  - MUSCULOSKELETAL CHEST PAIN [None]
  - NERVE COMPRESSION [None]
